FAERS Safety Report 20810897 (Version 1)
Quarter: 2022Q2

REPORT INFORMATION
  Report Type: Spontaneous
  Country: FR (occurrence: FR)
  Receive Date: 20220510
  Receipt Date: 20220510
  Transmission Date: 20220721
  Serious: Yes (Death)
  Sender: FDA-Public Use
  Company Number: None

PATIENT
  Sex: Female
  Weight: 2.85 kg

DRUGS (5)
  1. METHYLPREDNISOLONE [Suspect]
     Active Substance: METHYLPREDNISOLONE
     Indication: Multiple sclerosis
     Dosage: 1 G, 1X/DAY FOR 3 DAYS
     Route: 064
     Dates: start: 202102, end: 202102
  2. TOVIAZ [Suspect]
     Active Substance: FESOTERODINE FUMARATE
     Indication: Urinary incontinence
     Route: 064
     Dates: start: 20201207, end: 20201225
  3. TYSABRI [Suspect]
     Active Substance: NATALIZUMAB
     Indication: Multiple sclerosis
     Dosage: 300 MG, MONTHLY
     Route: 064
     Dates: start: 20210318, end: 20210708
  4. TAMSULOSIN HYDROCHLORIDE [Suspect]
     Active Substance: TAMSULOSIN HYDROCHLORIDE
     Indication: Urinary incontinence
     Route: 064
     Dates: start: 20201207, end: 20201225
  5. GILENYA [Suspect]
     Active Substance: FINGOLIMOD HYDROCHLORIDE
     Indication: Multiple sclerosis
     Dosage: 0.5 MG, 2X/DAY
     Route: 064
     Dates: start: 20201207, end: 20201225

REACTIONS (4)
  - Maternal exposure during pregnancy [Fatal]
  - Pulmonary arterial hypertension [Fatal]
  - Atrial septal defect [Fatal]
  - Patent ductus arteriosus [Fatal]

NARRATIVE: CASE EVENT DATE: 20210827
